FAERS Safety Report 6164544-7 (Version None)
Quarter: 2009Q2

REPORT INFORMATION
  Report Type: 
  Country: None (occurrence: None)
  Receive Date: 20090423
  Receipt Date: 20090409
  Transmission Date: 20091009
  Serious: Yes (Life-Threatening)
  Sender: FDA-Public Use
  Company Number: DE-RANBAXY-2009RR-23500

PATIENT
  Age: 29 Year
  Sex: Male
  Weight: 85.7 kg

DRUGS (4)
  1. IBUPROFEN [Suspect]
     Indication: PAIN
     Dosage: UNK
     Route: 048
     Dates: start: 20080912
  2. KOGENATE [Concomitant]
     Indication: FACTOR VIII DEFICIENCY
     Route: 040
  3. PEG-INTRON [Concomitant]
     Indication: HEPATITIS C
     Dosage: UNK
     Route: 058
     Dates: start: 20080401, end: 20081003
  4. REBETOL [Concomitant]
     Indication: HEPATITIS C
     Dosage: UNK
     Route: 048
     Dates: start: 20080401

REACTIONS (1)
  - HAEMORRHAGE [None]
